FAERS Safety Report 7164505-5 (Version None)
Quarter: 2010Q4

REPORT INFORMATION
  Report Type: 
  Country: None (occurrence: None)
  Receive Date: 20101203
  Receipt Date: 20101115
  Transmission Date: 20110411
  Serious: Yes (Life-Threatening, Hospitalization, Other)
  Sender: FDA-Public Use
  Company Number: JPI-P-013021

PATIENT
  Age: 61 Year
  Sex: Male
  Weight: 139.7079 kg

DRUGS (3)
  1. XYREM [Suspect]
     Indication: NARCOLEPSY
     Dosage: ORAL, 10.5 GM (5.25 GM,2 IN 1 D),ORAL
     Dates: start: 20050201
  2. XYREM [Suspect]
     Indication: SLEEP APNOEA SYNDROME
     Dosage: ORAL, 10.5 GM (5.25 GM,2 IN 1 D),ORAL
     Dates: start: 20050201
  3. MULTIPLE UNSPECIFIED HEART MEDICATIONS [Concomitant]

REACTIONS (3)
  - BLOOD PRESSURE IMMEASURABLE [None]
  - HYPOTENSION [None]
  - PULSE ABSENT [None]
